FAERS Safety Report 14205485 (Version 5)
Quarter: 2017Q4

REPORT INFORMATION
  Report Type: Report from Study
  Country: FR (occurrence: FR)
  Receive Date: 20171120
  Receipt Date: 20171215
  Transmission Date: 20180321
  Serious: Yes (Hospitalization)
  Sender: FDA-Public Use
  Company Number: FR-ROCHE-1897503

PATIENT
  Age: 66 Year
  Sex: Male
  Weight: 58.6 kg

DRUGS (21)
  1. NEULASTA [Concomitant]
     Active Substance: PEGFILGRASTIM
     Indication: NEUTROPENIA
     Route: 065
     Dates: start: 20170330, end: 20170330
  2. TRANSFUSION (PRBC) [Concomitant]
     Indication: ANAEMIA
     Route: 065
     Dates: start: 20170330, end: 20170330
  3. DEROXAT [Concomitant]
     Active Substance: PAROXETINE HYDROCHLORIDE
     Indication: ANXIETY
     Route: 065
     Dates: start: 20170721
  4. SIMVASTATINE [Concomitant]
     Active Substance: SIMVASTATIN
     Indication: HYPERCHOLESTEROLAEMIA
  5. MOPRAL [Concomitant]
     Active Substance: OMEPRAZOLE SODIUM
     Indication: GASTROOESOPHAGEAL REFLUX DISEASE
     Route: 065
     Dates: start: 20170330
  6. MICROLAX (FRANCE) [Concomitant]
     Indication: CONSTIPATION
     Route: 065
     Dates: start: 20170424, end: 20170424
  7. FORTIMEL [Concomitant]
     Active Substance: DIETARY SUPPLEMENT
     Indication: DECREASED APPETITE
     Route: 065
     Dates: start: 20170912
  8. PHOSPHONEUROS [Concomitant]
     Active Substance: CALCIUM PHOSPHATE, DIBASIC, ANHYDROUS\MAGNESIUM GLYCEROPHOSPHATE\PHOSPHORIC ACID\SODIUM PHOSPHATE, DIBASIC
     Indication: HYPOPHOSPHATAEMIA
     Route: 065
     Dates: start: 20170912
  9. CARBOPLATIN. [Suspect]
     Active Substance: CARBOPLATIN
     Indication: NON-SMALL CELL LUNG CANCER STAGE IV
     Dosage: TARGET AUC = 6 MG/ML/MIN?MOST RECENT DOSE (727.5 MG) PRIOR TO THE EVENT ADMINISTERED ON 23/JAN/2017
     Route: 042
     Dates: start: 20161212
  10. METFORMIN [Concomitant]
     Active Substance: METFORMIN HYDROCHLORIDE
     Indication: DIABETES MELLITUS
  11. DIFFU K [Concomitant]
     Active Substance: POTASSIUM CHLORIDE
     Indication: HYPOKALAEMIA
     Route: 065
     Dates: start: 20170803
  12. BECOTIDE [Concomitant]
     Active Substance: BECLOMETHASONE DIPROPIONATE
     Indication: ASTHMA
  13. FORTIMEL [Concomitant]
     Active Substance: DIETARY SUPPLEMENT
     Indication: DECREASED APPETITE
  14. TARDYFERON (FRANCE) [Concomitant]
     Active Substance: FERROUS SULFATE\GASTRIC MUCIN
     Indication: ANAEMIA
     Route: 065
     Dates: start: 20170720
  15. ATEZOLIZUMAB. [Suspect]
     Active Substance: ATEZOLIZUMAB
     Indication: NON-SMALL CELL LUNG CANCER STAGE IV
     Dosage: MOST RECENT DOSE PRIOR TO THE FIRST EPISODE OF FIRST OCCURRENCE OF ALTERATION OF GENERAL CONDITION W
     Route: 042
     Dates: start: 20161212
  16. PACLITAXEL. [Suspect]
     Active Substance: PACLITAXEL
     Indication: NON-SMALL CELL LUNG CANCER STAGE IV
     Dosage: MOST RECENT DOSE (368 MG) PRIOR TO THE EVENT ADMINISTERED ON 23/JAN/2017
     Route: 042
     Dates: start: 20161212
  17. PRIMPERAN [Concomitant]
     Active Substance: METOCLOPRAMIDE HYDROCHLORIDE
     Indication: NAUSEA
     Route: 065
     Dates: start: 20170330
  18. ZOLPIDEM [Concomitant]
     Active Substance: ZOLPIDEM\ZOLPIDEM TARTRATE
     Indication: SLEEP DISORDER
  19. ZOMETA [Concomitant]
     Active Substance: ZOLEDRONIC ACID
     Indication: HYPERCALCAEMIA
     Route: 065
     Dates: start: 20170803
  20. TAZOCILLIN [Concomitant]
     Active Substance: PIPERACILLIN SODIUM\TAZOBACTAM SODIUM
     Route: 065
  21. ROCEPHINE [Concomitant]
     Active Substance: CEFTRIAXONE SODIUM

REACTIONS (2)
  - Bronchitis [Recovered/Resolved]
  - General physical condition abnormal [Recovered/Resolved with Sequelae]

NARRATIVE: CASE EVENT DATE: 20170213
